FAERS Safety Report 7992535-X (Version None)
Quarter: 2011Q4

REPORT INFORMATION
  Report Type: 
  Country: None (occurrence: None)
  Receive Date: 20111219
  Receipt Date: 20111216
  Transmission Date: 20120403
  Serious: Yes (Other)
  Sender: FDA-Public Use
  Company Number: TR-ABBOTT-11P-161-0718347-00

PATIENT
  Age: 31 Year

DRUGS (2)
  1. HUMIRA [Suspect]
     Indication: INTESTINAL FISTULA
  2. HUMIRA [Suspect]
     Indication: CROHN'S DISEASE
     Route: 058
     Dates: start: 20100701, end: 20110401

REACTIONS (2)
  - PSORIASIS [None]
  - SKIN LESION [None]
